FAERS Safety Report 10823702 (Version 1)
Quarter: 2015Q1

REPORT INFORMATION
  Report Type: Spontaneous
  Country: US (occurrence: US)
  Receive Date: 20150218
  Receipt Date: 20150218
  Transmission Date: 20150721
  Serious: Yes (Other)
  Sender: FDA-Public Use
  Company Number: US-ASTRAZENECA-2015SE15088

PATIENT
  Sex: Female

DRUGS (2)
  1. BYDUREON [Suspect]
     Active Substance: EXENATIDE
     Indication: TYPE 2 DIABETES MELLITUS
     Route: 058
  2. TRAMADOL [Concomitant]
     Active Substance: TRAMADOL

REACTIONS (5)
  - Lethargy [Unknown]
  - Nausea [Unknown]
  - Intentional product misuse [Unknown]
  - Weight decreased [Unknown]
  - Malaise [Unknown]
